FAERS Safety Report 8618874-7 (Version None)
Quarter: 2012Q3

REPORT INFORMATION
  Report Type: 
  Country: None (occurrence: None)
  Receive Date: 20120824
  Receipt Date: 20120820
  Transmission Date: 20120928
  Serious: Yes (Other)
  Sender: FDA-Public Use
  Company Number: US-PFIZER INC-2012203955

PATIENT
  Age: 70 Year
  Sex: Female

DRUGS (2)
  1. XANAX [Suspect]
     Indication: PANIC DISORDER
     Dosage: 6 MG, UNK
     Dates: start: 19910101
  2. XANAX [Suspect]
     Indication: ANXIETY DISORDER
     Dosage: 5 MG, UNK

REACTIONS (8)
  - BURNING SENSATION [None]
  - DEPENDENCE [None]
  - LATEX ALLERGY [None]
  - COELIAC DISEASE [None]
  - WITHDRAWAL SYNDROME [None]
  - CHRONIC OBSTRUCTIVE PULMONARY DISEASE [None]
  - DRUG INEFFECTIVE [None]
  - ERYTHEMA [None]
